FAERS Safety Report 14028144 (Version 1)
Quarter: 2017Q3

REPORT INFORMATION
  Report Type: Spontaneous
  Country: US (occurrence: US)
  Receive Date: 20170930
  Receipt Date: 20170930
  Transmission Date: 20171128
  Serious: Yes (Other)
  Sender: FDA-Public Use
  Company Number: None

PATIENT
  Age: 59 Year
  Sex: Male
  Weight: 72.9 kg

DRUGS (2)
  1. SUPREP BOWEL PREP [Suspect]
     Active Substance: MAGNESIUM SULFATE\POTASSIUM SULFATE\SODIUM SULFATE
     Indication: COLONOSCOPY
     Dosage: ?          QUANTITY:6 OUNCE(S);?
     Route: 048
     Dates: start: 20170810, end: 20170811
  2. LINZESS [Concomitant]
     Active Substance: LINACLOTIDE

REACTIONS (1)
  - Infrequent bowel movements [None]

NARRATIVE: CASE EVENT DATE: 20170811
